FAERS Safety Report 10533420 (Version 1)
Quarter: 2014Q4

REPORT INFORMATION
  Report Type: Spontaneous
  Country: US (occurrence: US)
  Receive Date: 20141022
  Receipt Date: 20141022
  Transmission Date: 20150529
  Serious: No
  Sender: FDA-Public Use
  Company Number: US-PFIZER INC-2014286090

PATIENT
  Age: 55 Year
  Sex: Female
  Weight: 87.08 kg

DRUGS (4)
  1. HYDROXYZINE PAMOATE. [Concomitant]
     Active Substance: HYDROXYZINE PAMOATE
     Indication: SLEEP DISORDER
     Dosage: 25 MG, 1X/DAY (AT NIGHT)
  2. LYRICA [Suspect]
     Active Substance: PREGABALIN
     Indication: FIBROMYALGIA
     Dosage: 75 MG, 2X/DAY
     Dates: start: 201409
  3. XOLAIR [Concomitant]
     Active Substance: OMALIZUMAB
     Dosage: SHOTS ONCE A MONTH
  4. SERTRALINE [Concomitant]
     Active Substance: SERTRALINE HYDROCHLORIDE
     Indication: DEPRESSION
     Dosage: 50 MG, 2X/DAY

REACTIONS (2)
  - Hunger [Unknown]
  - Weight increased [Unknown]
